FAERS Safety Report 24905906 (Version 1)
Quarter: 2025Q1

REPORT INFORMATION
  Report Type: Report from Study
  Country: US (occurrence: US)
  Receive Date: 20250130
  Receipt Date: 20250130
  Transmission Date: 20250409
  Serious: Yes (Other)
  Sender: TEVA
  Company Number: US-TEVA-VS-3289366

PATIENT
  Age: 20 Year
  Sex: Female

DRUGS (1)
  1. CLARAVIS [Suspect]
     Active Substance: ISOTRETINOIN
     Indication: Product used for unknown indication
     Route: 065
     Dates: start: 20221007, end: 20231016

REACTIONS (1)
  - Unintended pregnancy [Unknown]

NARRATIVE: CASE EVENT DATE: 20230101
